FAERS Safety Report 5307511-5 (Version None)
Quarter: 2007Q2

REPORT INFORMATION
  Report Type: 
  Country: None (occurrence: None)
  Receive Date: 20070425
  Receipt Date: 20070412
  Transmission Date: 20071010
  Serious: Yes (Other)
  Sender: FDA-Public Use
  Company Number: GB-ELI_LILLY_AND_COMPANY-GB200704002586

PATIENT
  Age: 7 Year
  Sex: Female
  Weight: 37.5 kg

DRUGS (2)
  1. STRATTERA [Suspect]
     Indication: PSYCHOMOTOR HYPERACTIVITY
     Dosage: 40 MG, UNK
     Route: 048
     Dates: start: 20061201
  2. VALPROATE SODIUM [Concomitant]
     Indication: CONVULSION
     Dosage: 400 MG, 2/D
     Route: 048
     Dates: start: 20030101

REACTIONS (2)
  - ABNORMAL BEHAVIOUR [None]
  - MANIA [None]
